FAERS Safety Report 7913240-1 (Version None)
Quarter: 2011Q4

REPORT INFORMATION
  Report Type: 
  Country: None (occurrence: None)
  Receive Date: 20111114
  Receipt Date: 20111102
  Transmission Date: 20120403
  Serious: Yes (Hospitalization)
  Sender: FDA-Public Use
  Company Number: TH-PFIZER INC-2011247247

PATIENT
  Age: 39 Year
  Sex: Male
  Weight: 53.7 kg

DRUGS (12)
  1. EFAVIRENZ [Concomitant]
     Indication: HIV INFECTION
     Dosage: 600 MG, 1X/DAY
     Route: 048
     Dates: start: 20111004
  2. TENOFOVIR DISOPROXIL FUMARATE [Concomitant]
     Indication: HIV INFECTION
     Dosage: 300 MG, 1X/DAY BEDTIME
     Route: 048
     Dates: start: 20111004
  3. MAGNESIUM OXIDE [Concomitant]
     Indication: SUPPLEMENTATION THERAPY
     Dosage: 3 TIMES DAILY
     Route: 048
     Dates: end: 20111013
  4. COTRIM [Concomitant]
     Indication: OPPORTUNISTIC INFECTION PROPHYLAXIS
     Dosage: 2 TABLETS, ONCE DAILY
     Route: 048
  5. MULTIVITAMIN [Concomitant]
     Indication: SUPPLEMENTATION THERAPY
     Dosage: THREE TIMES DAILY
     Route: 048
     Dates: end: 20111013
  6. AZITHROMYCIN [Concomitant]
     Indication: OPPORTUNISTIC INFECTION PROPHYLAXIS
     Dosage: 1000 MG, WEEKLY ON FRIDAY
     Route: 048
  7. VALPROATE SODIUM [Concomitant]
     Indication: CONVULSION
     Dosage: 500 MG, 2X/DAY
     Route: 048
  8. AMLODIPINE [Concomitant]
     Indication: HYPERTENSION
     Dosage: 10 MG, 1X/DAY
     Route: 048
  9. FERROUS FUMARATE [Concomitant]
     Indication: ANAEMIA
     Dosage: 1 TABLET, 3 TIMES DAILY
     Route: 048
  10. FLUCONAZOLE [Suspect]
     Indication: MENINGITIS CRYPTOCOCCAL
     Dosage: 200 MG, 1X/DAY
     Route: 048
     Dates: start: 20110929, end: 20111012
  11. LAMIVUDINE [Concomitant]
     Indication: HIV INFECTION
     Dosage: 300 MG, 1X/DAY BEDTIME
     Route: 048
     Dates: start: 20111004
  12. ACETAMINOPHEN [Concomitant]
     Indication: HEADACHE
     Dosage: 1000 MG, EVERY 4-6 HOURS AS NEEDED
     Route: 048

REACTIONS (2)
  - TREATMENT FAILURE [None]
  - MENINGITIS CRYPTOCOCCAL [None]
